FAERS Safety Report 14578748 (Version 1)
Quarter: 2018Q1

REPORT INFORMATION
  Report Type: Spontaneous
  Country: US (occurrence: US)
  Receive Date: 20180227
  Receipt Date: 20180227
  Transmission Date: 20180509
  Serious: No
  Sender: FDA-Public Use
  Company Number: US-TARO-2017TAR00759

PATIENT
  Sex: Female

DRUGS (1)
  1. MICONAZOLE NITRATE VAGINAL CREAM USP 2% 7 DAY CREAM [Suspect]
     Active Substance: MICONAZOLE NITRATE
     Dosage: UNK
     Route: 067

REACTIONS (4)
  - Vulvovaginal injury [Unknown]
  - Incorrect drug administration duration [Recovered/Resolved]
  - Product quality issue [Recovered/Resolved]
  - Pain [Unknown]
